FAERS Safety Report 22061793 (Version 4)
Quarter: 2024Q1

REPORT INFORMATION
  Report Type: Report from Study
  Country: IL (occurrence: IL)
  Receive Date: 20230304
  Receipt Date: 20240217
  Transmission Date: 20240410
  Serious: Yes (Death, Life-Threatening, Other)
  Sender: FDA-Public Use
  Company Number: IL-ABBVIE-20K-082-3361214-00

PATIENT
  Age: 81 Year
  Sex: Female
  Weight: 80 kg

DRUGS (17)
  1. VENETOCLAX [Suspect]
     Active Substance: VENETOCLAX
     Indication: Chronic lymphocytic leukaemia
     Dosage: 20 MILLIGRAM?RAMP-UP
     Route: 048
     Dates: start: 20200324, end: 20200406
  2. VENETOCLAX [Suspect]
     Active Substance: VENETOCLAX
     Indication: Chronic lymphocytic leukaemia
     Dosage: 50 MILLIGRAM?RAMP-UP
     Route: 048
     Dates: start: 20200901, end: 20200908
  3. VENETOCLAX [Suspect]
     Active Substance: VENETOCLAX
     Indication: Chronic lymphocytic leukaemia
     Dosage: 100 MILLIGRAM?RAMP-UP
     Route: 048
     Dates: start: 20200908, end: 20200915
  4. VENETOCLAX [Suspect]
     Active Substance: VENETOCLAX
     Indication: Chronic lymphocytic leukaemia
     Dosage: 200 MILLIGRAM?RAMP-UP
     Route: 048
     Dates: start: 20200915, end: 20200922
  5. VENETOCLAX [Suspect]
     Active Substance: VENETOCLAX
     Indication: Chronic lymphocytic leukaemia
     Dosage: FIRST ADMIN -2020?RAMP-UP
     Route: 048
     Dates: end: 20200517
  6. UNSPECIFIED INGREDIENT [Concomitant]
     Active Substance: UNSPECIFIED INGREDIENT
     Indication: Prophylaxis
  7. OBINUTUZUMAB [Suspect]
     Active Substance: OBINUTUZUMAB
     Indication: Monoclonal antibody immunoconjugate therapy
     Route: 065
     Dates: start: 20200303, end: 20200317
  8. OBINUTUZUMAB [Suspect]
     Active Substance: OBINUTUZUMAB
     Indication: Monoclonal antibody immunoconjugate therapy
     Dosage: CYCLE 2
     Route: 065
     Dates: start: 20200329, end: 20200329
  9. OBINUTUZUMAB [Suspect]
     Active Substance: OBINUTUZUMAB
     Indication: Monoclonal antibody immunoconjugate therapy
     Dosage: CYCLE 3
     Route: 065
     Dates: start: 20200330, end: 20200330
  10. ALLOPURINOL [Concomitant]
     Active Substance: ALLOPURINOL
     Indication: Prophylaxis
     Dates: start: 20200317
  11. NORMOPRESAN [Concomitant]
     Indication: Hypertension
  12. Lercapress [Concomitant]
     Indication: Hypertension
  13. ASPIRIN [Concomitant]
     Active Substance: ASPIRIN
     Indication: Pain prophylaxis
  14. EUTHYROX [Concomitant]
     Active Substance: LEVOTHYROXINE SODIUM
     Indication: Hypothyroidism
  15. Fusid [Concomitant]
     Indication: Pulmonary hypertension
  16. pramin [Concomitant]
     Indication: Antacid therapy
  17. LOSARTAN POTASSIUM [Concomitant]
     Active Substance: LOSARTAN POTASSIUM
     Indication: Hypertension

REACTIONS (5)
  - Anaemia [Fatal]
  - Neutropenia [Not Recovered/Not Resolved]
  - Neutropenia [Recovered/Resolved]
  - Thrombocytopenia [Fatal]
  - Disease progression [Unknown]

NARRATIVE: CASE EVENT DATE: 20200329
